FAERS Safety Report 24941743 (Version 1)
Quarter: 2025Q1

REPORT INFORMATION
  Report Type: Spontaneous
  Country: IN (occurrence: IN)
  Receive Date: 20250207
  Receipt Date: 20250207
  Transmission Date: 20250409
  Serious: Yes (Other)
  Sender: NOVARTIS
  Company Number: IN-002147023-NVSC2025IN018698

PATIENT
  Sex: Female

DRUGS (1)
  1. BROLUCIZUMAB [Suspect]
     Active Substance: BROLUCIZUMAB
     Indication: Diabetic retinal oedema
     Dosage: UNK, QMO (QUARTERLY)
     Route: 031

REACTIONS (4)
  - Retinal vasculitis [Not Recovered/Not Resolved]
  - Choroidal detachment [Not Recovered/Not Resolved]
  - Subretinal fluid [Unknown]
  - Visual impairment [Unknown]

NARRATIVE: CASE EVENT DATE: 20250131
